FAERS Safety Report 17308779 (Version 1)
Quarter: 2020Q1

REPORT INFORMATION
  Report Type: Spontaneous
  Country: HU (occurrence: HU)
  Receive Date: 20200123
  Receipt Date: 20200123
  Transmission Date: 20200409
  Serious: Yes (Hospitalization, Other)
  Sender: FDA-Public Use
  Company Number: HU-BAYER-2020-006364

PATIENT
  Age: 62 Year
  Sex: Male

DRUGS (4)
  1. CIPROFLOXACIN. [Suspect]
     Active Substance: CIPROFLOXACIN
     Dosage: UNK
  2. CEFTRIAXON [Suspect]
     Active Substance: CEFTRIAXONE
     Indication: ESCHERICHIA BACTERAEMIA
  3. AMOXICILLIN. [Suspect]
     Active Substance: AMOXICILLIN
     Indication: STAPHYLOCOCCAL ABSCESS
  4. AMIKACIN. [Suspect]
     Active Substance: AMIKACIN
     Indication: ESCHERICHIA BACTERAEMIA
     Dosage: UNK

REACTIONS (7)
  - Extradural abscess [Recovered/Resolved]
  - Urosepsis [Recovered/Resolved]
  - Psoas abscess [Recovered/Resolved]
  - Arthralgia [Recovered/Resolved]
  - Drug ineffective [None]
  - Paraparesis [Recovered/Resolved]
  - Paraspinal abscess [Recovered/Resolved]

NARRATIVE: CASE EVENT DATE: 20170528
